FAERS Safety Report 16387958 (Version 2)
Quarter: 2019Q2

REPORT INFORMATION
  Report Type: Report from Study
  Country: US (occurrence: US)
  Receive Date: 20190604
  Receipt Date: 20190614
  Transmission Date: 20190711
  Serious: No
  Sender: FDA-Public Use
  Company Number: US-ROCHE-2330421

PATIENT
  Age: 58 Year
  Sex: Female
  Weight: 61.29 kg

DRUGS (2)
  1. OCREVUS [Suspect]
     Active Substance: OCRELIZUMAB
     Indication: RELAPSING-REMITTING MULTIPLE SCLEROSIS
     Route: 042
     Dates: start: 201711
  2. SYNTHROID [Concomitant]
     Active Substance: LEVOTHYROXINE SODIUM
     Indication: HYPOTHYROIDISM
     Route: 048
     Dates: start: 20090101

REACTIONS (8)
  - Nasopharyngitis [Recovered/Resolved]
  - Abdominal distension [Recovered/Resolved]
  - Bladder prolapse [Unknown]
  - Oropharyngeal pain [Recovered/Resolved]
  - Defaecation urgency [Unknown]
  - Decreased appetite [Unknown]
  - Diarrhoea [Recovered/Resolved]
  - Vestibular neuronitis [Unknown]

NARRATIVE: CASE EVENT DATE: 201904
